FAERS Safety Report 7571621-2 (Version None)
Quarter: 2011Q2

REPORT INFORMATION
  Report Type: 
  Country: None (occurrence: None)
  Receive Date: 20110624
  Receipt Date: 20110621
  Transmission Date: 20111010
  Serious: Yes (Death)
  Sender: FDA-Public Use
  Company Number: FR-JNJFOC-20110609870

PATIENT
  Age: 87 Year
  Sex: Female

DRUGS (3)
  1. FENTANYL CITRATE [Suspect]
     Indication: ARTERITIS
     Route: 060
  2. ABSTRAL [Concomitant]
     Indication: ARTERITIS
     Route: 065
     Dates: start: 20110422
  3. DURAGESIC-100 [Suspect]
     Indication: ARTERITIS
     Route: 062

REACTIONS (1)
  - DISEASE PROGRESSION [None]
